FAERS Safety Report 4283044-2 (Version None)
Quarter: 2004Q1

REPORT INFORMATION
  Report Type: 
  Country: None (occurrence: None)
  Receive Date: 20040129
  Receipt Date: 20040120
  Transmission Date: 20041129
  Serious: Yes (Hospitalization)
  Sender: FDA-Public Use
  Company Number: 04P-163-0247774-00

PATIENT
  Age: 35 Year
  Sex: Female

DRUGS (11)
  1. HUMIRA [Suspect]
     Indication: RHEUMATOID ARTHRITIS
     Dosage: 40 MG, 1 IN 2 WK, SUBCUTANEOUS
     Route: 058
     Dates: start: 20030930, end: 20040119
  2. PREDNISONE [Concomitant]
  3. POLYSACCHARIDE-IRON COMPLEX [Concomitant]
  4. FOLIC ACID [Concomitant]
  5. METHOTREXATE [Concomitant]
  6. ALENDRONATE SODIUM [Concomitant]
  7. DETROL-XL [Concomitant]
  8. ESOMEPRAZOLE [Concomitant]
  9. QUINAPRIL HYDROCHLORIDE [Concomitant]
  10. METFORMIN HYDROCHLORIDE [Concomitant]
  11. ATORVASTATIN [Concomitant]

REACTIONS (2)
  - AORTIC ANEURYSM [None]
  - INFECTION [None]
